FAERS Safety Report 6515978-X (Version None)
Quarter: 2009Q4

REPORT INFORMATION
  Report Type: 
  Country: None (occurrence: None)
  Receive Date: 20091223
  Receipt Date: 20091215
  Transmission Date: 20100525
  Serious: Yes (Hospitalization)
  Sender: FDA-Public Use
  Company Number: US-ELI_LILLY_AND_COMPANY-US200912004017

PATIENT
  Sex: Male
  Weight: 68.49 kg

DRUGS (25)
  1. PEMETREXED [Suspect]
     Indication: NON-SMALL CELL LUNG CANCER
     Dosage: 925 MG, OTHER
     Route: 042
     Dates: start: 20090929
  2. CARBOPLATIN [Suspect]
     Indication: NON-SMALL CELL LUNG CANCER
     Dosage: 468 MG, OTHER
     Route: 042
     Dates: start: 20090929
  3. CETUXIMAB [Suspect]
     Indication: NON-SMALL CELL LUNG CANCER
     Dosage: 462 MG, OTHER
     Route: 042
     Dates: start: 20090929
  4. ASPIRIN [Concomitant]
     Dosage: 81 MG, DAILY (1/D)
     Route: 048
  5. TOPROL-XL [Concomitant]
     Dosage: 25 MG, DAILY (1/D)
  6. PROSCAR [Concomitant]
     Dosage: 5 MG, DAILY (1/D)
  7. ALTACE [Concomitant]
     Dosage: 2.5 MG, DAILY (1/D)
  8. NORVASC [Concomitant]
     Dosage: 10 MG, DAILY (1/D)
  9. POTASSIUM [Concomitant]
     Dosage: 10 MEQ, DAILY (1/D)
  10. LASIX [Concomitant]
     Dosage: 20 MG, UNK
  11. TRICOR [Concomitant]
     Dosage: 145 MG, DAILY (1/D)
  12. ZANTAC [Concomitant]
     Dosage: 150 MG, 2/D
  13. VALIUM [Concomitant]
     Dosage: 5 MG, 2/D
  14. LORTAB [Concomitant]
     Dosage: UNK, 2/D
  15. CENTRUM SILVER [Concomitant]
     Dosage: UNK, DAILY (1/D)
  16. HALDOL [Concomitant]
     Dosage: 1 MG, DAILY (1/D)
  17. DECADRON /NET/ [Concomitant]
     Dosage: 4 MG, UNK
  18. FOLIC ACID [Concomitant]
     Dosage: 1 MG, DAILY (1/D)
  19. ZOFRAN [Concomitant]
     Dosage: 8 MG, 3/D
  20. LEXAPRO [Concomitant]
     Dosage: 10 MG, DAILY (1/D)
  21. MEDROL [Concomitant]
     Dosage: 4 MG, DAILY (1/D)
  22. VIBRAMYCIN                              /NET/ [Concomitant]
     Dosage: 100 MG, DAILY (1/D)
  23. CLOTRIMAZOLE [Concomitant]
     Dosage: UNK, AS NEEDED
     Route: 061
  24. NEXIUM [Concomitant]
     Dosage: 40 MG, DAILY (1/D)
  25. FLUCONAZOLE [Concomitant]
     Dosage: 150 MG, DAILY (1/D)

REACTIONS (1)
  - CHEST PAIN [None]
